FAERS Safety Report 11382563 (Version 1)
Quarter: 2015Q3

REPORT INFORMATION
  Report Type: Report from Study
  Country: US (occurrence: US)
  Receive Date: 20150814
  Receipt Date: 20150814
  Transmission Date: 20151125
  Serious: Yes (Death)
  Sender: FDA-Public Use
  Company Number: US-ASTELLAS-2015US020599

PATIENT
  Sex: Male

DRUGS (2)
  1. XELODA [Concomitant]
     Active Substance: CAPECITABINE
     Indication: PRODUCT USED FOR UNKNOWN INDICATION
     Route: 048
  2. ERLOTINIB [Suspect]
     Active Substance: ERLOTINIB
     Indication: PANCREATIC CARCINOMA
     Route: 048
     Dates: start: 20070918

REACTIONS (2)
  - Rash [Unknown]
  - Death [Fatal]
